FAERS Safety Report 8765581 (Version 2)
Quarter: 2012Q4

REPORT INFORMATION
  Report Type: 
  Country: US (occurrence: US)
  Receive Date: 20120903
  Receipt Date: 20121015
  Transmission Date: 20130627
  Serious: Yes (Other)
  Sender: FDA-Public Use
  Company Number: PHEH2012US017047

PATIENT
  Sex: Female

DRUGS (2)
  1. DIOVAN [Suspect]
     Dosage: 320 mg
     Route: 048
  2. DIOVAN [Suspect]
     Dosage: 160 mg
     Route: 048

REACTIONS (2)
  - Weight decreased [Unknown]
  - Wrong technique in drug usage process [Unknown]
